FAERS Safety Report 8388672-0 (Version None)
Quarter: 2012Q2

REPORT INFORMATION
  Report Type: 
  Country: None (occurrence: None)
  Receive Date: 20120525
  Receipt Date: 20120522
  Transmission Date: 20120825
  Serious: Yes (Hospitalization, Other)
  Sender: FDA-Public Use
  Company Number: US-AMGEN-USASP2012028296

PATIENT
  Age: 74 Year
  Sex: Female
  Weight: 71.655 kg

DRUGS (9)
  1. ZANTAC [Concomitant]
     Dosage: 150 MG, UNK
     Route: 048
  2. DIOVAN HCT [Concomitant]
     Route: 048
  3. CALCIUM [Concomitant]
     Indication: HYPOCALCAEMIA
     Dosage: UNK
  4. LIPITOR [Concomitant]
     Dosage: 40 MG, UNK
  5. PROLIA [Suspect]
     Indication: OSTEOPOROSIS POSTMENOPAUSAL
     Dosage: 60 MG, Q6MO
     Route: 058
     Dates: start: 20120124
  6. AMBIEN [Concomitant]
     Dosage: 0.5 UNK, QHS
     Route: 048
  7. DEXILANT [Concomitant]
     Dosage: 60 MG, UNK
  8. ZYRTEC [Concomitant]
     Dosage: 10 MG, UNK
     Route: 048
  9. VITAMIN D [Concomitant]

REACTIONS (30)
  - LOW DENSITY LIPOPROTEIN INCREASED [None]
  - COUGH [None]
  - DEHYDRATION [None]
  - PAIN [None]
  - DECREASED APPETITE [None]
  - BLOOD COUNT ABNORMAL [None]
  - IMMUNOSUPPRESSION [None]
  - ANAEMIA [None]
  - PULMONARY OEDEMA [None]
  - NEUTROPHIL COUNT DECREASED [None]
  - CHEST DISCOMFORT [None]
  - ANXIETY [None]
  - HYPOCALCAEMIA [None]
  - OESOPHAGITIS ULCERATIVE [None]
  - VOMITING [None]
  - PYREXIA [None]
  - HEADACHE [None]
  - PRURITUS [None]
  - ABDOMINAL PAIN [None]
  - MUSCLE SPASMS [None]
  - SINUSITIS [None]
  - OROPHARYNGEAL PAIN [None]
  - DYSPHONIA [None]
  - FEELING ABNORMAL [None]
  - BACK PAIN [None]
  - BEHCET'S SYNDROME [None]
  - NAUSEA [None]
  - POLLAKIURIA [None]
  - ASTHMA [None]
  - PALLOR [None]
